FAERS Safety Report 8166149-5 (Version None)
Quarter: 2012Q1

REPORT INFORMATION
  Report Type: 
  Country: None (occurrence: None)
  Receive Date: 20120227
  Receipt Date: 20110509
  Transmission Date: 20120608
  Serious: No
  Sender: FDA-Public Use
  Company Number: US-MYLANLABS-2011S1007483

PATIENT
  Age: 33 Year
  Sex: Female

DRUGS (3)
  1. AMNESTEEM [Suspect]
  2. AMNESTEEM [Suspect]
     Indication: ACNE
     Dates: start: 20111129
  3. AMNESTEEM [Suspect]
     Dates: end: 20110310

REACTIONS (1)
  - HEADACHE [None]
